FAERS Safety Report 23396855 (Version 3)
Quarter: 2024Q1

REPORT INFORMATION
  Report Type: Spontaneous
  Country: IE (occurrence: IE)
  Receive Date: 20240112
  Receipt Date: 20240207
  Transmission Date: 20240409
  Serious: No
  Sender: FDA-Public Use
  Company Number: IE-PFIZER INC-PV202300205483

PATIENT
  Age: 10 Year
  Sex: Female

DRUGS (1)
  1. NGENLA [Suspect]
     Active Substance: SOMATROGON-GHLA
     Indication: Growth hormone deficiency
     Dosage: 22 MG, ONCE WEEKLY

REACTIONS (2)
  - Injection site pain [Not Recovered/Not Resolved]
  - Rash [Recovered/Resolved]
